FAERS Safety Report 6640556-1 (Version None)
Quarter: 2010Q1

REPORT INFORMATION
  Report Type: 
  Country: None (occurrence: None)
  Receive Date: 20100318
  Receipt Date: 20100309
  Transmission Date: 20100710
  Serious: Yes (Hospitalization, Other)
  Sender: FDA-Public Use
  Company Number: DK-PFIZER INC-2010030231

PATIENT
  Sex: Male

DRUGS (2)
  1. DALACIN [Suspect]
     Indication: SKIN DISORDER
     Dosage: 300 MG, 1X/DAY
     Route: 048
  2. RIMACTANE [Concomitant]
     Dosage: UNK

REACTIONS (1)
  - ANAPHYLACTIC SHOCK [None]
